FAERS Safety Report 7797940-2 (Version None)
Quarter: 2011Q4

REPORT INFORMATION
  Report Type: 
  Country: None (occurrence: None)
  Receive Date: 20111005
  Receipt Date: 20110927
  Transmission Date: 20120403
  Serious: Yes (Other)
  Sender: FDA-Public Use
  Company Number: US-GLAXOSMITHKLINE-A0930416A

PATIENT
  Age: 35 Year
  Sex: Female
  Weight: 55 kg

DRUGS (2)
  1. CAPECITABINE [Suspect]
     Indication: BREAST NEOPLASM
     Dosage: 2G TWICE PER DAY
     Route: 048
  2. TYKERB [Suspect]
     Indication: BREAST CANCER
     Dosage: 1250MG PER DAY
     Route: 065
     Dates: start: 20110520, end: 20110530

REACTIONS (5)
  - METASTASES TO BONE [None]
  - ADVERSE DRUG REACTION [None]
  - DISEASE PROGRESSION [None]
  - DIARRHOEA [None]
  - RECURRENT CANCER [None]
